FAERS Safety Report 12743172 (Version 2)
Quarter: 2016Q3

REPORT INFORMATION
  Report Type: Report from Study
  Country: CA (occurrence: CA)
  Receive Date: 20160914
  Receipt Date: 20160922
  Transmission Date: 20161109
  Serious: Yes (Hospitalization, Other)
  Sender: FDA-Public Use
  Company Number: CA-TOLMAR, INC.-2015CA000230

PATIENT

DRUGS (4)
  1. ELIGARD [Suspect]
     Active Substance: LEUPROLIDE ACETATE
     Indication: CANCER HORMONAL THERAPY
     Dosage: 22.5 MG, Q3MONTHS
     Route: 058
     Dates: start: 20131010, end: 20160905
  2. FOSAMAX [Concomitant]
     Active Substance: ALENDRONATE SODIUM
  3. CARBOCAL [Concomitant]
     Active Substance: CALCIUM CARBONATE
  4. CALCIUM +VIT D [Concomitant]
     Active Substance: CALCIUM\VITAMIN D

REACTIONS (8)
  - Fracture [Recovering/Resolving]
  - Pain [Not Recovered/Not Resolved]
  - Headache [Not Recovered/Not Resolved]
  - Dyspnoea [Not Recovered/Not Resolved]
  - Oedema peripheral [Not Recovered/Not Resolved]
  - Blood pressure increased [Not Recovered/Not Resolved]
  - Fatigue [Not Recovered/Not Resolved]
  - Arthralgia [Not Recovered/Not Resolved]

NARRATIVE: CASE EVENT DATE: 201411
